FAERS Safety Report 10086880 (Version 4)
Quarter: 2014Q3

REPORT INFORMATION
  Report Type: Spontaneous
  Country: US (occurrence: US)
  Receive Date: 20140418
  Receipt Date: 20140910
  Transmission Date: 20150326
  Serious: No
  Sender: FDA-Public Use
  Company Number: US-009507513-1404USA004477

PATIENT
  Sex: Female
  Weight: 84.81 kg

DRUGS (1)
  1. NEXPLANON [Suspect]
     Active Substance: ETONOGESTREL
     Indication: PRODUCT USED FOR UNKNOWN INDICATION
     Dosage: 68 MG, UNK
     Dates: start: 20121228, end: 20140402

REACTIONS (12)
  - Device difficult to use [Unknown]
  - Menorrhagia [Unknown]
  - Menstruation irregular [Unknown]
  - Dysmenorrhoea [Unknown]
  - Dysmenorrhoea [Recovered/Resolved]
  - Product quality issue [Unknown]
  - Implant site swelling [Recovered/Resolved]
  - Device malfunction [Recovered/Resolved]
  - Menstruation irregular [Recovered/Resolved]
  - Haemorrhagic disorder [Recovered/Resolved]
  - Device breakage [Recovered/Resolved]
  - Menorrhagia [Recovered/Resolved]

NARRATIVE: CASE EVENT DATE: 20121228
